FAERS Safety Report 16960106 (Version 2)
Quarter: 2019Q4

REPORT INFORMATION
  Report Type: Report from Study
  Country: US (occurrence: US)
  Receive Date: 20191025
  Receipt Date: 20191112
  Transmission Date: 20200122
  Serious: Yes (Hospitalization, Other)
  Sender: FDA-Public Use
  Company Number: US-ROCHE-2443493

PATIENT
  Age: 62 Year
  Sex: Female
  Weight: 67.19 kg

DRUGS (15)
  1. GABAPENTIN. [Concomitant]
     Active Substance: GABAPENTIN
     Indication: PAIN
     Route: 065
  2. OMEPRAZOL [OMEPRAZOLE] [Concomitant]
     Active Substance: OMEPRAZOLE
  3. DESITIN [COD-LIVER OIL;ZINC OXIDE] [Concomitant]
  4. BUSPIRONE HCL [Concomitant]
     Active Substance: BUSPIRONE HYDROCHLORIDE
     Route: 065
  5. DRONABINOL. [Concomitant]
     Active Substance: DRONABINOL
     Route: 065
  6. MILK OF MAGNESIA [Concomitant]
     Active Substance: MAGNESIUM HYDROXIDE
     Indication: CONSTIPATION
  7. ASPIRIN 81 [Concomitant]
     Active Substance: ASPIRIN
     Route: 065
  8. HYDROXIZINE HCL [Concomitant]
     Indication: ANXIETY
     Route: 065
  9. OCREVUS [Suspect]
     Active Substance: OCRELIZUMAB
     Indication: PROGRESSIVE MULTIPLE SCLEROSIS
     Dosage: DATE OF TREATMENT: 05/MAR/2019 AND 05/SEP/2018
     Route: 042
     Dates: start: 20180822
  10. APRISO [Concomitant]
     Active Substance: MESALAMINE
     Indication: COLITIS ULCERATIVE
     Dosage: 4 OF 0.75 GR CAPSULE
     Route: 065
  11. SERTRALINE HCL [Concomitant]
     Active Substance: SERTRALINE HYDROCHLORIDE
     Indication: DEPRESSION
     Route: 065
  12. ACETAMINOFEN [Concomitant]
     Active Substance: ACETAMINOPHEN
  13. HYDROCORTICONE [Concomitant]
     Active Substance: HYDROCORTISONE
     Indication: ECZEMA
     Route: 065
  14. HYDROXIZINE HCL [Concomitant]
     Indication: AGITATION
  15. MELATONIN [Concomitant]
     Active Substance: MELATONIN
     Route: 065

REACTIONS (4)
  - Immunosuppression [Recovered/Resolved]
  - Carotid artery occlusion [Not Recovered/Not Resolved]
  - Transient ischaemic attack [Recovered/Resolved]
  - Corona virus infection [Recovered/Resolved]

NARRATIVE: CASE EVENT DATE: 20190305
